FAERS Safety Report 24715413 (Version 1)
Quarter: 2024Q4

REPORT INFORMATION
  Report Type: Spontaneous
  Country: FR (occurrence: FR)
  Receive Date: 20241210
  Receipt Date: 20241210
  Transmission Date: 20250115
  Serious: Yes (Hospitalization, Other)
  Sender: CHEPLAPHARM
  Company Number: None

PATIENT
  Age: 23 Year
  Sex: Male

DRUGS (4)
  1. CLONAZEPAM [Suspect]
     Active Substance: CLONAZEPAM
     Dosage: 2 TIMES A DAY AND 3 JOINTS A DAY
  2. LYRICA [Suspect]
     Active Substance: PREGABALIN
     Dosage: 600MG/D/300MG: 2 TABLETS A DAY / BID?DAILY DOSE: 2 DOSAGE FORM
  3. CANNABIS SATIVA SUBSP. INDICA TOP [Suspect]
     Active Substance: CANNABIS SATIVA SUBSP. INDICA TOP
     Dosage: 3 JOINTS/J
  4. COCAINE [Suspect]
     Active Substance: COCAINE

REACTIONS (5)
  - Asthma [Unknown]
  - Dependence [Not Recovered/Not Resolved]
  - Intentional product misuse [Not Recovered/Not Resolved]
  - Weight decreased [Unknown]
  - Productive cough [Unknown]

NARRATIVE: CASE EVENT DATE: 20240601
